FAERS Safety Report 5917617-5 (Version None)
Quarter: 2008Q4

REPORT INFORMATION
  Report Type: 
  Country: None (occurrence: None)
  Receive Date: 20081014
  Receipt Date: 20081008
  Transmission Date: 20090506
  Serious: Yes (Hospitalization, Disabling, Other)
  Sender: FDA-Public Use
  Company Number: US-MERCK-0403USA02556

PATIENT
  Age: 79 Year
  Sex: Female
  Weight: 76 kg

DRUGS (14)
  1. SINGULAIR [Suspect]
     Indication: RHINITIS ALLERGIC
     Route: 048
     Dates: start: 20030601, end: 20040201
  2. SINGULAIR [Suspect]
     Route: 048
     Dates: start: 20040101, end: 20060601
  3. SINGULAIR [Suspect]
     Route: 048
     Dates: start: 20060101
  4. SINGULAIR [Suspect]
     Indication: FOOD ALLERGY
     Route: 048
     Dates: start: 20030601, end: 20040201
  5. SINGULAIR [Suspect]
     Route: 048
     Dates: start: 20040101, end: 20060601
  6. SINGULAIR [Suspect]
     Route: 048
     Dates: start: 20060101
  7. COUGH, COLD, AND FLU THERAPIES (UNSPECIFIED) [Concomitant]
     Route: 065
  8. BENADRYL [Concomitant]
     Indication: HYPERSENSITIVITY
     Route: 051
  9. ATIVAN [Concomitant]
     Route: 065
  10. PRILOSEC [Concomitant]
     Route: 065
  11. ARISTOCORT [Concomitant]
     Route: 065
  12. DILAUDID [Concomitant]
     Route: 065
  13. ASPIRIN [Concomitant]
     Route: 065
  14. CHLOR-TRIMETON [Concomitant]
     Route: 065

REACTIONS (20)
  - ABDOMINAL DISCOMFORT [None]
  - ABDOMINAL DISTENSION [None]
  - ARTHRALGIA [None]
  - DRUG INEFFECTIVE [None]
  - DRUG INTOLERANCE [None]
  - DYSPNOEA [None]
  - EAR PAIN [None]
  - GASTROINTESTINAL DISORDER [None]
  - GASTROOESOPHAGEAL REFLUX DISEASE [None]
  - LOWER EXTREMITY MASS [None]
  - MALAISE [None]
  - MENTAL DISORDER [None]
  - MYALGIA [None]
  - OEDEMA PERIPHERAL [None]
  - OROPHARYNGEAL PAIN [None]
  - PAIN IN EXTREMITY [None]
  - PAIN IN JAW [None]
  - PARATHYROID DISORDER [None]
  - SLEEP APNOEA SYNDROME [None]
  - VEIN DISORDER [None]
